FAERS Safety Report 18904188 (Version 1)
Quarter: 2021Q1

REPORT INFORMATION
  Report Type: Spontaneous
  Country: DE (occurrence: DE)
  Receive Date: 20210217
  Receipt Date: 20210217
  Transmission Date: 20210420
  Serious: Yes (Other)
  Sender: FDA-Public Use
  Company Number: DE-TORRENT-00019590

PATIENT
  Age: 1 Day
  Sex: Female
  Weight: 3 kg

DRUGS (9)
  1. L?THYROXIN [Concomitant]
     Active Substance: LEVOTHYROXINE SODIUM
     Indication: HYPOTHYROIDISM
     Dosage: 50 G/D
     Route: 064
     Dates: start: 20181209, end: 20190826
  2. LAMOTRIGINE. [Suspect]
     Active Substance: LAMOTRIGINE
     Indication: EPILEPSY
     Dosage: 2000 MG/D (BIS 450)
     Route: 064
     Dates: start: 20181209, end: 20190826
  3. IBUPROFEN. [Concomitant]
     Active Substance: IBUPROFEN
     Indication: RHEUMATOID ARTHRITIS
     Dosage: IN TOTAL, 10 TABLES DURING PREGNANCY
     Route: 064
  4. PANTOPRAZOL [Concomitant]
     Active Substance: PANTOPRAZOLE SODIUM
     Indication: GASTRITIS PROPHYLAXIS
     Dosage: 40 MG/D
     Route: 064
  5. AGYRAX [Concomitant]
     Active Substance: MECLIZINE HYDROCHLORIDE
     Indication: MORNING SICKNESS
     Dosage: 100 MG/D
     Route: 064
  6. CIMZIA [Concomitant]
     Active Substance: CERTOLIZUMAB PEGOL
     Indication: RHEUMATOID ARTHRITIS
     Dosage: 200 MG / 2 WEEK
     Route: 064
     Dates: start: 20181209, end: 20190826
  7. PARACETAMOL [Concomitant]
     Active Substance: ACETAMINOPHEN
     Indication: RHEUMATOID ARTHRITIS
     Dosage: 500 MG/D, IN TOTAL, NO MORE THAN 25 TABLETS DURING THE WHOLE PREGNANCY
     Route: 064
  8. PREDNISOLON [Concomitant]
     Active Substance: PREDNISOLONE
     Indication: RHEUMATOID ARTHRITIS
     Dosage: 10 MG/D, 5 MG/D
     Route: 064
     Dates: start: 20181209, end: 20190826
  9. FRISIUM [Suspect]
     Active Substance: CLOBAZAM
     Indication: EPILEPSY
     Dosage: 20 MG/D, (FIRST 5 MG/D, THEN 10 MG/D, FROM GW 35: 20 MG/D
     Route: 064
     Dates: start: 20190801, end: 20190826

REACTIONS (3)
  - Myoclonus [Unknown]
  - Floppy infant [Recovered/Resolved]
  - Foetal exposure during pregnancy [Unknown]

NARRATIVE: CASE EVENT DATE: 20181209
